FAERS Safety Report 19011108 (Version 1)
Quarter: 2021Q1

REPORT INFORMATION
  Report Type: Spontaneous
  Country: DE (occurrence: DE)
  Receive Date: 20210316
  Receipt Date: 20210316
  Transmission Date: 20210420
  Serious: Yes (Other)
  Sender: FDA-Public Use
  Company Number: DE-BAYER-2021-101917

PATIENT
  Age: 24 Year
  Sex: Female

DRUGS (1)
  1. KYLEENA [Suspect]
     Active Substance: LEVONORGESTREL
     Indication: INTRAUTERINE CONTRACEPTION
     Dosage: 17.5 ?G PER DAY, CONTINUOUSLY
     Route: 015

REACTIONS (9)
  - Irritability [Recovered/Resolved]
  - Alopecia [Recovered/Resolved]
  - Mood swings [Recovered/Resolved]
  - Depressed mood [Recovered/Resolved]
  - Weight increased [Recovered/Resolved]
  - Anal abscess [Recovered/Resolved]
  - Loss of libido [Recovered/Resolved]
  - Sleep disorder [Recovered/Resolved]
  - Migraine [Recovered/Resolved]
